FAERS Safety Report 8536824-9 (Version None)
Quarter: 2012Q3

REPORT INFORMATION
  Report Type: 
  Country: None (occurrence: None)
  Receive Date: 20120725
  Receipt Date: 20120713
  Transmission Date: 20120928
  Serious: Yes (Disabling, Other)
  Sender: FDA-Public Use
  Company Number: US-ELI_LILLY_AND_COMPANY-US201207004542

PATIENT
  Sex: Female

DRUGS (5)
  1. NOVOLIN 70/30 [Concomitant]
  2. ILETIN [Suspect]
  3. LANTUS [Concomitant]
  4. HUMALOG [Suspect]
     Indication: TYPE 1 DIABETES MELLITUS
     Dosage: UNK, PRN
  5. HUMULIN N [Suspect]
     Route: 058

REACTIONS (1)
  - BLINDNESS [None]
